FAERS Safety Report 14033941 (Version 1)
Quarter: 2017Q4

REPORT INFORMATION
  Report Type: Spontaneous
  Country: ES (occurrence: ES)
  Receive Date: 20171003
  Receipt Date: 20171003
  Transmission Date: 20180321
  Serious: Yes (Other)
  Sender: FDA-Public Use
  Company Number: ES-AMGEN-ESPSP2017145633

PATIENT
  Age: 38 Year
  Sex: Female

DRUGS (4)
  1. PROLIA [Suspect]
     Active Substance: DENOSUMAB
     Dosage: UNK
     Route: 065
     Dates: start: 201405
  2. PROLIA [Suspect]
     Active Substance: DENOSUMAB
     Dosage: UNK
     Route: 065
     Dates: start: 201301
  3. PROLIA [Suspect]
     Active Substance: DENOSUMAB
     Indication: OSTEOPOROSIS
     Dosage: UNK
     Route: 065
     Dates: start: 201205
  4. OCTREOTIDE. [Concomitant]
     Active Substance: OCTREOTIDE
     Indication: GASTROINTESTINAL ANGIODYSPLASIA
     Dosage: UNK
     Dates: start: 2014

REACTIONS (6)
  - Hypocalcaemia [Recovered/Resolved]
  - Hyperparathyroidism [Recovered/Resolved]
  - Systemic lupus erythematosus [Unknown]
  - Hypophosphataemia [Recovered/Resolved]
  - Device related infection [Unknown]
  - Gastrointestinal haemorrhage [Unknown]

NARRATIVE: CASE EVENT DATE: 2014
